FAERS Safety Report 7882404-8 (Version None)
Quarter: 2011Q4

REPORT INFORMATION
  Report Type: 
  Country: None (occurrence: None)
  Receive Date: 20111101
  Receipt Date: 20110614
  Transmission Date: 20120403
  Serious: No
  Sender: FDA-Public Use
  Company Number: US-AMGEN-USASP2011030492

PATIENT
  Age: 46 Year
  Sex: Female

DRUGS (1)
  1. ENBREL [Suspect]
     Indication: RHEUMATOID ARTHRITIS
     Dosage: 50 MG, QWK
     Dates: start: 20110518

REACTIONS (6)
  - EAR INFECTION [None]
  - MUSCLE RUPTURE [None]
  - TENDON RUPTURE [None]
  - BRONCHITIS [None]
  - RHEUMATOID ARTHRITIS [None]
  - JOINT EFFUSION [None]
